FAERS Safety Report 9839304 (Version 2)
Quarter: 2014Q1

REPORT INFORMATION
  Report Type: Spontaneous
  Country: US (occurrence: US)
  Receive Date: 20140123
  Receipt Date: 20140220
  Transmission Date: 20141002
  Serious: Yes (Other)
  Sender: FDA-Public Use
  Company Number: PHEH2014US001527

PATIENT
  Age: 73 Year
  Sex: Female

DRUGS (4)
  1. DIOVAN [Suspect]
     Dosage: 320 MG, UNK
  2. NEXIUM//ESOMEPRAZOLE SODIUM [Concomitant]
     Dosage: UNK UKN, UNK
  3. POTASSIUM [Concomitant]
     Dosage: UNK UKN, UNK
  4. SYNTHROID [Concomitant]
     Dosage: UNK UKN, UNK

REACTIONS (1)
  - Road traffic accident [Unknown]
